FAERS Safety Report 18061924 (Version 4)
Quarter: 2020Q3

REPORT INFORMATION
  Report Type: Spontaneous
  Country: GB (occurrence: GB)
  Receive Date: 20200723
  Receipt Date: 20200818
  Transmission Date: 20201103
  Serious: Yes (Hospitalization, Other)
  Sender: FDA-Public Use
  Company Number: GB-MYLANLABS-2020M1067345

PATIENT
  Age: 40 Year
  Sex: Female

DRUGS (10)
  1. FENTANYL. [Suspect]
     Active Substance: FENTANYL
     Indication: EPIDURAL ANALGESIA
  2. MORPHINE [Suspect]
     Active Substance: MORPHINE
     Indication: PAIN IN EXTREMITY
     Route: 042
  3. BUPIVICAINE [Suspect]
     Active Substance: BUPIVACAINE
     Indication: SPINAL ANAESTHESIA
     Dosage: 2.5 MILLILITER 0.5% HYPERBARIC BUPIVACAINE 2.5 ML WITH DIAMORPHINE 300 MICROGRAM
     Route: 024
  4. BUPIVICAINE [Suspect]
     Active Substance: BUPIVACAINE
     Indication: ANALGESIC THERAPY
  5. OXYTOCIN. [Suspect]
     Active Substance: OXYTOCIN
     Indication: LABOUR INDUCTION
  6. OXYTOCIN. [Suspect]
     Active Substance: OXYTOCIN
     Indication: LABOUR AUGMENTATION
     Route: 041
  7. BUPIVICAINE [Suspect]
     Active Substance: BUPIVACAINE
     Indication: EPIDURAL ANALGESIA
     Dosage: 0.1 %, UNK
     Route: 008
  8. DIAMORPHINE [Suspect]
     Active Substance: DIAMORPHINE
     Indication: SPINAL ANAESTHESIA
     Dosage: 300 MICROGRAM
     Route: 024
  9. FENTANYL. [Suspect]
     Active Substance: FENTANYL
     Indication: SPINAL ANAESTHESIA
     Dosage: 2 MICROGRAM.ML?1
     Route: 008
  10. FENTANYL. [Suspect]
     Active Substance: FENTANYL
     Indication: ANALGESIC THERAPY

REACTIONS (3)
  - Drug ineffective [Unknown]
  - Maternal exposure during delivery [Unknown]
  - Spinal cord injury [Unknown]
